FAERS Safety Report 24059824 (Version 1)
Quarter: 2024Q3

REPORT INFORMATION
  Report Type: Spontaneous
  Country: US (occurrence: None)
  Receive Date: 20240704
  Receipt Date: 20240704
  Transmission Date: 20241017
  Serious: Yes (Hospitalization)
  Sender: Public
  Company Number: None

PATIENT
  Age: 16 Year
  Sex: Female
  Weight: 47.25 kg

DRUGS (1)
  1. DIPHENHYDRAMINE HYDROCHLORIDE [Suspect]
     Active Substance: DIPHENHYDRAMINE HYDROCHLORIDE
     Dates: start: 20240703, end: 20240703

REACTIONS (3)
  - Seizure [None]
  - Incorrect dose administered [None]
  - Toxicity to various agents [None]

NARRATIVE: CASE EVENT DATE: 20240703
